FAERS Safety Report 8531963-0 (Version None)
Quarter: 2012Q3

REPORT INFORMATION
  Report Type: 
  Country: None (occurrence: None)
  Receive Date: 20120723
  Receipt Date: 20120717
  Transmission Date: 20120928
  Serious: Yes (Other)
  Sender: FDA-Public Use
  Company Number: US-PFIZER INC-2012172718

PATIENT
  Sex: Female
  Weight: 57.596 kg

DRUGS (1)
  1. LATANOPROST [Suspect]
     Dosage: UNK, DAILY
     Route: 047
     Dates: start: 20110101

REACTIONS (4)
  - RHINORRHOEA [None]
  - VISUAL IMPAIRMENT [None]
  - EYELID MARGIN CRUSTING [None]
  - PHARYNGEAL DISORDER [None]
